FAERS Safety Report 6810288-5 (Version None)
Quarter: 2010Q2

REPORT INFORMATION
  Report Type: 
  Country: None (occurrence: None)
  Receive Date: 20100630
  Receipt Date: 20100621
  Transmission Date: 20101027
  Serious: Yes (Death, Other)
  Sender: FDA-Public Use
  Company Number: CN-BRISTOL-MYERS SQUIBB COMPANY-15157779

PATIENT
  Age: 59 Year
  Sex: Female

DRUGS (3)
  1. CISPLATIN [Suspect]
     Indication: LUNG NEOPLASM MALIGNANT
     Dosage: 25MG/M SUP (2) ON DAY 1-3
     Dates: start: 20060429
  2. VINORELBINE [Suspect]
     Indication: LUNG NEOPLASM MALIGNANT
     Dosage: 25MG/M SUP (2) ON DAYS 1 AND 8
     Dates: start: 20060429
  3. RADIOTHERAPY [Suspect]
     Indication: LUNG NEOPLASM MALIGNANT
     Dosage: 1DOSAGE FORM=65 GY IN 25 FRACTIONS.
     Dates: start: 20060601

REACTIONS (2)
  - RECALL PHENOMENON [None]
  - RESPIRATORY FAILURE [None]
